FAERS Safety Report 6390184-0 (Version None)
Quarter: 2009Q4

REPORT INFORMATION
  Report Type: 
  Country: None (occurrence: None)
  Receive Date: 20091005
  Receipt Date: 20091005
  Transmission Date: 20100525
  Serious: Yes (Hospitalization)
  Sender: FDA-Public Use
  Company Number: None

PATIENT
  Age: 77 Year
  Sex: Male

DRUGS (1)
  1. CLONIDINE [Suspect]
     Indication: HYPERTENSION
     Dosage: 0.1 MG EVERY DAY PO
     Route: 048
     Dates: start: 20080418, end: 20090811

REACTIONS (3)
  - BRADYCARDIA [None]
  - DIZZINESS [None]
  - PRESYNCOPE [None]
